FAERS Safety Report 8297091-7 (Version None)
Quarter: 2012Q2

REPORT INFORMATION
  Report Type: 
  Country: None (occurrence: None)
  Receive Date: 20120416
  Receipt Date: 20120410
  Transmission Date: 20120825
  Serious: Yes (Hospitalization, Other)
  Sender: FDA-Public Use
  Company Number: 2011SP041921

PATIENT
  Age: 23 Year
  Sex: Female
  Weight: 76.2043 kg

DRUGS (3)
  1. TRAZODONE HCL [Concomitant]
  2. ZOLOFT [Concomitant]
  3. NUVARING [Suspect]
     Indication: CONTRACEPTION
     Dates: start: 20061201, end: 20110101

REACTIONS (32)
  - SLEEP DISORDER [None]
  - PAIN [None]
  - MAJOR DEPRESSION [None]
  - INJURY [None]
  - EXCORIATION [None]
  - ALCOHOL POISONING [None]
  - EDUCATIONAL PROBLEM [None]
  - HAEMATOCHEZIA [None]
  - SUICIDE ATTEMPT [None]
  - INTENTIONAL SELF-INJURY [None]
  - SUPRAVENTRICULAR EXTRASYSTOLES [None]
  - PULMONARY EMBOLISM [None]
  - ECONOMIC PROBLEM [None]
  - CONSTIPATION [None]
  - PELVIC PAIN [None]
  - EMOTIONAL DISORDER [None]
  - TEARFULNESS [None]
  - VULVOVAGINAL PRURITUS [None]
  - PHARYNGEAL CYST [None]
  - VAGINAL DISCHARGE [None]
  - FIBRIN D DIMER INCREASED [None]
  - ATTENTION DEFICIT/HYPERACTIVITY DISORDER [None]
  - THYROGLOSSAL CYST INFECTION [None]
  - PALPITATIONS [None]
  - STRESS [None]
  - ASTHENIA [None]
  - OVARIAN CYST [None]
  - GENERALISED ANXIETY DISORDER [None]
  - ANAEMIA [None]
  - GASTROOESOPHAGEAL REFLUX DISEASE [None]
  - LYMPHADENOPATHY [None]
  - VENTRICULAR EXTRASYSTOLES [None]
